FAERS Safety Report 6405243-3 (Version None)
Quarter: 2009Q4

REPORT INFORMATION
  Report Type: 
  Country: None (occurrence: None)
  Receive Date: 20091014
  Receipt Date: 20090930
  Transmission Date: 20100525
  Serious: Yes (Hospitalization)
  Sender: FDA-Public Use
  Company Number: 2009AC000090

PATIENT
  Age: 59 Year
  Sex: Female

DRUGS (47)
  1. DIGOXIN [Suspect]
     Dosage: 0.125 MG;QD;PO
     Route: 048
     Dates: start: 19970101, end: 20090618
  2. GLIPIZIDE [Concomitant]
  3. METFORMIN HCL [Concomitant]
  4. ZYRTEC [Concomitant]
  5. CIPROFLOXCIN [Concomitant]
  6. ZOCOR [Concomitant]
  7. PLAVIX [Concomitant]
  8. HUMALOG [Concomitant]
  9. LANTUS [Concomitant]
  10. DETROL [Concomitant]
  11. LISINOPRIL [Concomitant]
  12. FUROSEMIDE [Concomitant]
  13. AVAPRO [Concomitant]
  14. NOVALOG [Concomitant]
  15. ISOSORBIDE [Concomitant]
  16. CLOPIDOGREL [Concomitant]
  17. DICYCLOMIDE [Concomitant]
  18. OMEPRAZOLE [Concomitant]
  19. IMDUR [Concomitant]
  20. KLONOPIN [Concomitant]
  21. BELLA [Concomitant]
  22. CEFTIN [Concomitant]
  23. CODEINE [Concomitant]
  24. ORPHENADRINE CITRATE [Concomitant]
  25. PHENTERMINE HYDROCHLORIDE [Concomitant]
  26. PROPO-N-APA [Concomitant]
  27. ALPRAZOLAM [Concomitant]
  28. OXYBUTYNIN CHLORIDE [Concomitant]
  29. RELION PEN [Concomitant]
  30. PERCOCET [Concomitant]
  31. CLONAZEPAM [Concomitant]
  32. NEXIUM [Concomitant]
  33. ACETAMINOPHEN [Concomitant]
  34. BENADRYL [Concomitant]
  35. NEURONTIN [Concomitant]
  36. HYDROMORPHONE [Concomitant]
  37. METOPROLOL [Concomitant]
  38. AMBIENT [Concomitant]
  39. PLAVIX [Concomitant]
  40. ASPIRIN [Concomitant]
  41. GABAPENTIN [Concomitant]
  42. DIOVAN [Concomitant]
  43. XALATAN [Concomitant]
  44. LIDODERM [Concomitant]
  45. LEVAQUIN [Concomitant]
  46. PANTOPRAZOLE [Concomitant]
  47. ZOLPIDEM [Concomitant]

REACTIONS (30)
  - ANXIETY [None]
  - AORTIC STENOSIS [None]
  - ARTHRALGIA [None]
  - BLOOD GLUCOSE INCREASED [None]
  - CORONARY ARTERY DISEASE [None]
  - DEPRESSION [None]
  - DIASTOLIC DYSFUNCTION [None]
  - DIZZINESS [None]
  - DYSPNOEA EXERTIONAL [None]
  - FALL [None]
  - FEAR [None]
  - GAIT DISTURBANCE [None]
  - HEADACHE [None]
  - INTERVERTEBRAL DISC DEGENERATION [None]
  - INTERVERTEBRAL DISC PROTRUSION [None]
  - LEFT VENTRICULAR HYPERTROPHY [None]
  - MASS [None]
  - MULTIPLE INJURIES [None]
  - NARCOLEPSY [None]
  - NERVOUSNESS [None]
  - NEUROPATHY PERIPHERAL [None]
  - PAIN [None]
  - PAIN IN EXTREMITY [None]
  - PERICARDIAL EFFUSION [None]
  - PERIPHERAL VASCULAR DISORDER [None]
  - RENAL FAILURE [None]
  - SLEEP APNOEA SYNDROME [None]
  - TENDONITIS [None]
  - THERAPEUTIC AGENT TOXICITY [None]
  - VISION BLURRED [None]
